FAERS Safety Report 19482178 (Version 1)
Quarter: 2021Q3

REPORT INFORMATION
  Report Type: Spontaneous
  Country: US (occurrence: US)
  Receive Date: 20210701
  Receipt Date: 20210701
  Transmission Date: 20211014
  Serious: No
  Sender: FDA-Public Use
  Company Number: US-LUPIN PHARMACEUTICALS INC.-2021-10473

PATIENT
  Age: 48 Year
  Sex: Female

DRUGS (2)
  1. HYDROCORTISONE. [Suspect]
     Active Substance: HYDROCORTISONE
     Indication: DERMATITIS CONTACT
     Dosage: UNK (FORMULATION: CREAM)
     Route: 061
  2. TRIAMCINOLONE ACETONIDE CREAM [Suspect]
     Active Substance: TRIAMCINOLONE ACETONIDE
     Indication: DERMATITIS CONTACT
     Dosage: UNK
     Route: 061

REACTIONS (2)
  - Condition aggravated [Recovering/Resolving]
  - Dermatitis contact [Recovering/Resolving]
